FAERS Safety Report 20365159 (Version 2)
Quarter: 2025Q2

REPORT INFORMATION
  Report Type: Report from Study
  Country: PL (occurrence: PL)
  Receive Date: 20220122
  Receipt Date: 20250611
  Transmission Date: 20250716
  Serious: Yes (Death, Hospitalization, Other)
  Sender: AUROBINDO
  Company Number: PL-EMA-DD-20171213-aksevhumanp-103758

PATIENT
  Age: 24 Year
  Sex: Male

DRUGS (3)
  1. ACETAMINOPHEN [Suspect]
     Active Substance: ACETAMINOPHEN
     Indication: Product used for unknown indication
     Route: 065
  2. AMPHETAMINE [Suspect]
     Active Substance: AMPHETAMINE
     Indication: Product used for unknown indication
     Route: 065
  3. MIDAZOLAM [Suspect]
     Active Substance: MIDAZOLAM
     Indication: Seizure
     Route: 065

REACTIONS (6)
  - Circulatory collapse [Fatal]
  - Renal failure [Fatal]
  - Pyrexia [Fatal]
  - Toxicity to various agents [Fatal]
  - Drug dependence [Fatal]
  - Product administered to patient of inappropriate age [Fatal]
